FAERS Safety Report 4424611-2 (Version None)
Quarter: 2004Q3

REPORT INFORMATION
  Report Type: 
  Country: None (occurrence: None)
  Receive Date: 20040812
  Receipt Date: 20040806
  Transmission Date: 20050211
  Serious: Yes (Other)
  Sender: FDA-Public Use
  Company Number: PHBS2004BE10409

PATIENT
  Age: 73 Year
  Sex: Female

DRUGS (1)
  1. MIACALCIN [Suspect]
     Indication: REFLEX SYMPATHETIC DYSTROPHY
     Dosage: 100 IU/DAY
     Route: 058
     Dates: start: 20040526, end: 20040614

REACTIONS (4)
  - INJECTION SITE CALCIFICATION [None]
  - INJECTION SITE INFLAMMATION [None]
  - INJECTION SITE PAIN [None]
  - SECRETION DISCHARGE [None]
